FAERS Safety Report 25476187 (Version 1)
Quarter: 2025Q2

REPORT INFORMATION
  Report Type: Spontaneous
  Country: US (occurrence: US)
  Receive Date: 20250625
  Receipt Date: 20250625
  Transmission Date: 20250716
  Serious: No
  Sender: Harrow Health
  Company Number: US-HARROW-HAR-2025-US-00092

PATIENT

DRUGS (1)
  1. VEVYE [Suspect]
     Active Substance: CYCLOSPORINE

REACTIONS (5)
  - Eyelid margin crusting [Recovered/Resolved]
  - Eye pruritus [Recovered/Resolved]
  - Lacrimation increased [Recovered/Resolved]
  - Eye pain [Recovered/Resolved]
  - Vision blurred [Recovered/Resolved]
